FAERS Safety Report 11882040 (Version 2)
Quarter: 2016Q1

REPORT INFORMATION
  Report Type: Spontaneous
  Country: JP (occurrence: JP)
  Receive Date: 20151231
  Receipt Date: 20160329
  Transmission Date: 20160526
  Serious: No
  Sender: FDA-Public Use
  Company Number: JP-JNJFOC-20150913662

PATIENT
  Age: 73 Year
  Sex: Male
  Weight: 55 kg

DRUGS (6)
  1. SUGLAT [Concomitant]
     Active Substance: IPRAGLIFLOZIN L-PROLINE
     Indication: TYPE 2 DIABETES MELLITUS
     Route: 048
     Dates: start: 20140515, end: 20141114
  2. CANAGLU [Suspect]
     Active Substance: CANAGLIFLOZIN
     Indication: TYPE 2 DIABETES MELLITUS
     Route: 048
     Dates: start: 20141114
  3. TENELIA [Concomitant]
     Active Substance: TENELIGLIPTIN
     Indication: TYPE 2 DIABETES MELLITUS
     Route: 048
     Dates: start: 20131227
  4. METFORMIN [Concomitant]
     Active Substance: METFORMIN HYDROCHLORIDE
     Indication: TYPE 2 DIABETES MELLITUS
     Route: 048
     Dates: start: 20130710
  5. NESINA [Concomitant]
     Active Substance: ALOGLIPTIN BENZOATE
     Indication: TYPE 2 DIABETES MELLITUS
     Route: 048
     Dates: start: 20130710, end: 20131226
  6. GLIMICRON [Concomitant]
     Active Substance: GLICLAZIDE
     Indication: TYPE 2 DIABETES MELLITUS
     Route: 048
     Dates: start: 20130710

REACTIONS (2)
  - Cataract operation [Recovered/Resolved]
  - Dizziness [Recovered/Resolved]

NARRATIVE: CASE EVENT DATE: 20150310
